FAERS Safety Report 6113112-1 (Version None)
Quarter: 2009Q1

REPORT INFORMATION
  Report Type: 
  Country: None (occurrence: None)
  Receive Date: 20090312
  Receipt Date: 20090305
  Transmission Date: 20090719
  Serious: Yes (Life-Threatening, Other)
  Sender: FDA-Public Use
  Company Number: US-MERCK-0902USA04371

PATIENT
  Age: 10 Year
  Sex: Male
  Weight: 50 kg

DRUGS (10)
  1. SINGULAIR [Suspect]
     Indication: RHINITIS ALLERGIC
     Route: 048
     Dates: start: 20050101, end: 20081231
  2. RISPERDAL [Concomitant]
     Indication: BIPOLAR DISORDER
     Route: 065
  3. GEODON [Concomitant]
     Indication: BIPOLAR DISORDER
     Route: 065
  4. ABILIFY [Concomitant]
     Indication: BIPOLAR DISORDER
     Route: 065
  5. DEPAKOTE [Concomitant]
     Indication: BIPOLAR DISORDER
     Route: 065
  6. QVAR 40 [Concomitant]
     Indication: ASTHMA
     Route: 065
  7. QVAR 40 [Concomitant]
     Indication: RHINITIS ALLERGIC
     Route: 065
  8. INTAL [Concomitant]
     Indication: ASTHMA
     Route: 065
  9. NASONEX [Concomitant]
     Indication: RHINITIS ALLERGIC
     Route: 065
  10. ZYRTEC [Concomitant]
     Indication: RHINITIS ALLERGIC
     Route: 065

REACTIONS (4)
  - BIPOLAR DISORDER [None]
  - HALLUCINATION [None]
  - MOOD ALTERED [None]
  - NIGHTMARE [None]
